FAERS Safety Report 6997457-9 (Version None)
Quarter: 2010Q3

REPORT INFORMATION
  Report Type: 
  Country: None (occurrence: None)
  Receive Date: 20100918
  Receipt Date: 20091015
  Transmission Date: 20110219
  Serious: No
  Sender: FDA-Public Use
  Company Number: US-WYE-H11708909

PATIENT
  Sex: Male

DRUGS (3)
  1. PRISTIQ [Suspect]
     Indication: DEPRESSION
     Route: 048
     Dates: start: 20091014
  2. XANAX [Concomitant]
  3. AMBIEN [Suspect]
     Indication: INSOMNIA
     Route: 048

REACTIONS (2)
  - ABDOMINAL PAIN UPPER [None]
  - DIZZINESS [None]
